FAERS Safety Report 10732558 (Version 1)
Quarter: 2015Q1

REPORT INFORMATION
  Report Type: Spontaneous
  Country: FR (occurrence: None)
  Receive Date: 20150120
  Receipt Date: 20150120
  Transmission Date: 20150721
  Serious: Yes (Hospitalization)
  Sender: FDA-Public Use
  Company Number: FK201402657

PATIENT
  Age: 86 Year
  Sex: Female

DRUGS (6)
  1. KABIVEN [Suspect]
     Active Substance: AMINO ACIDS\ANHYDROUS DEXTROSE\CALCIUM CHLORIDE\MAGNESIUM SULFATE HEPTAHYDRATE\POTASSIUM CHLORIDE\SODIUM ACETATE\SODIUM GLYCEROPHOSPHATE ANHYDROUS\SOYBEAN OIL
     Indication: PARENTERAL NUTRITION
     Route: 042
     Dates: start: 20140615, end: 20140616
  2. SODIUM CHLORIDE. [Suspect]
     Active Substance: SODIUM CHLORIDE
     Indication: DEHYDRATION
     Dosage: 1 DOSAGE FORMS, 1 IN 1 D, INTRAVNEOUS (NOT OTHERWISE SPECIFIED)
     Route: 042
     Dates: start: 20140615, end: 20140615
  3. PYRIDOXINE CHLORHYDRATE [Suspect]
     Active Substance: PYRIDOXINE HYDROCHLORIDE
     Indication: PRODUCT USED FOR UNKNOWN INDICATION
     Route: 042
     Dates: start: 20140615, end: 20140615
  4. CALCIUM GLUCONATE (CALCIUM GLUCONATE) [Suspect]
     Active Substance: CALCIUM GLUCONATE
     Indication: PRODUCT USED FOR UNKNOWN INDICATION
     Route: 042
     Dates: start: 20140615, end: 20140615
  5. BEVITINE(THIAMINE HYDROCHLORIDE)(THIAMINE HYDROCHLORIDE) [Suspect]
     Active Substance: THIAMINE HYDROCHLORIDE
     Indication: PRODUCT USED FOR UNKNOWN INDICATION
     Dosage: 1 DOSAGE FORMS, 2 IN 1 D, INTRAVNEOUS (NOT OTHERWISE SPECIFIED)
     Route: 042
     Dates: start: 20140615, end: 20140615
  6. NONAN [Suspect]
     Active Substance: MINERALS
     Route: 042
     Dates: start: 20140616, end: 20140616

REACTIONS (1)
  - Lymphangitis [None]

NARRATIVE: CASE EVENT DATE: 20140615
